FAERS Safety Report 12077742 (Version 3)
Quarter: 2016Q1

REPORT INFORMATION
  Report Type: Spontaneous
  Country: GB (occurrence: GB)
  Receive Date: 20160215
  Receipt Date: 20160316
  Transmission Date: 20160526
  Serious: Yes (Other)
  Sender: FDA-Public Use
  Company Number: PHFR2015GB009401

PATIENT
  Age: 62 Year
  Sex: Female
  Weight: 94.6 kg

DRUGS (7)
  1. METFORMIN [Concomitant]
     Active Substance: METFORMIN HYDROCHLORIDE
     Indication: TYPE 2 DIABETES MELLITUS
     Dosage: 1 G, BID
     Route: 065
     Dates: start: 2012
  2. LANSOPRAZOLE. [Concomitant]
     Active Substance: LANSOPRAZOLE
     Indication: GASTRITIS
     Dosage: 30 MG, QD
     Route: 065
     Dates: start: 201501
  3. PARACETAMOL [Concomitant]
     Active Substance: ACETAMINOPHEN
     Indication: PAIN
     Dosage: 1 G, PRN
     Route: 065
     Dates: start: 2000
  4. ADCAL D3 [Concomitant]
     Active Substance: CALCIUM CARBONATE\CHOLECALCIFEROL
     Indication: BLOOD POTASSIUM DECREASED
     Route: 065
     Dates: start: 201501
  5. AFINITOR [Suspect]
     Active Substance: EVEROLIMUS
     Indication: BREAST CANCER METASTATIC
     Dosage: 10 MG, QD
     Route: 048
     Dates: start: 20150219, end: 20151107
  6. ZOMETA [Concomitant]
     Active Substance: ZOLEDRONIC ACID
     Indication: METASTASES TO BONE
     Dosage: 4 MG, QMO
     Route: 042
     Dates: start: 201501
  7. MIRTAZAPINE. [Concomitant]
     Active Substance: MIRTAZAPINE
     Indication: DEPRESSION
     Dosage: 750 MG, QD
     Route: 065
     Dates: start: 201501

REACTIONS (18)
  - Dyspnoea [Recovering/Resolving]
  - Rib fracture [Not Recovered/Not Resolved]
  - Chest pain [Recovering/Resolving]
  - Metastases to bone [Recovering/Resolving]
  - Pneumonia [Recovered/Resolved]
  - Computerised tomogram thorax abnormal [Unknown]
  - Crepitations [Recovering/Resolving]
  - Diarrhoea [Recovered/Resolved]
  - Dyspnoea exertional [Recovering/Resolving]
  - Lung consolidation [Recovering/Resolving]
  - Hepatic steatosis [Recovering/Resolving]
  - Pneumonitis [Recovering/Resolving]
  - Wheezing [Recovering/Resolving]
  - Pyrexia [Recovering/Resolving]
  - Emphysema [Recovering/Resolving]
  - Cough [Recovering/Resolving]
  - Atelectasis [Recovering/Resolving]
  - Sepsis [Recovered/Resolved]

NARRATIVE: CASE EVENT DATE: 20151106
